FAERS Safety Report 5848334-8 (Version None)
Quarter: 2008Q3

REPORT INFORMATION
  Report Type: 
  Country: None (occurrence: None)
  Receive Date: 20080818
  Receipt Date: 20080714
  Transmission Date: 20090109
  Serious: No
  Sender: FDA-Public Use
  Company Number: US-BAYER-200829168NA

PATIENT
  Age: 39 Year
  Sex: Male
  Weight: 64 kg

DRUGS (1)
  1. MAGNEVIST [Suspect]
     Indication: NUCLEAR MAGNETIC RESONANCE IMAGING
     Dosage: TOTAL DAILY DOSE: 12.5 ML
     Route: 042
     Dates: start: 20080708, end: 20080708

REACTIONS (3)
  - EAR PRURITUS [None]
  - PARAESTHESIA ORAL [None]
  - PRURITUS [None]
